FAERS Safety Report 24654143 (Version 1)
Quarter: 2024Q4

REPORT INFORMATION
  Report Type: Spontaneous
  Country: US (occurrence: US)
  Receive Date: 20241122
  Receipt Date: 20241122
  Transmission Date: 20250114
  Serious: No
  Sender: ALEXION PHARMACEUTICALS
  Company Number: US-AstraZeneca-CH-00753912AP

PATIENT

DRUGS (2)
  1. BYETTA [Suspect]
     Active Substance: EXENATIDE
     Dosage: 1.2 MILLILITER
  2. BYETTA [Suspect]
     Active Substance: EXENATIDE
     Dosage: 1.2 MILLILITER

REACTIONS (1)
  - Hypoacusis [Unknown]
